FAERS Safety Report 8521535-6 (Version None)
Quarter: 2012Q3

REPORT INFORMATION
  Report Type: 
  Country: None (occurrence: None)
  Receive Date: 20120719
  Receipt Date: 20120711
  Transmission Date: 20120928
  Serious: Yes (Other)
  Sender: FDA-Public Use
  Company Number: PHHY2012BR052460

PATIENT
  Age: 80 Year
  Sex: Female
  Weight: 49 kg

DRUGS (3)
  1. ACETAMINOPHEN W/ CODEINE [Concomitant]
     Indication: PAIN
     Dosage: 30 MG, Q12H, IF GREAT PAIN, ONE TAB EVERY 4 HOURS
     Route: 048
  2. CODEINE SUL TAB [Concomitant]
     Indication: PAIN
     Dosage: 30 MG, Q12H, IF GREAT PAIN, ONE TAB EVERY FOUR HOURS
     Route: 048
  3. DICLOFENAC SODIUM [Suspect]
     Indication: PAIN
     Dosage: 50 MG, Q12H, IF GREAT PAIN, ONE TAB EVERY 4 HOURS
     Route: 048

REACTIONS (7)
  - ANAEMIA [None]
  - PAIN [None]
  - EATING DISORDER [None]
  - VOMITING [None]
  - ASTHENIA [None]
  - WEIGHT DECREASED [None]
  - DIZZINESS [None]
